FAERS Safety Report 23732123 (Version 1)
Quarter: 2024Q2

REPORT INFORMATION
  Report Type: Report from Study
  Country: CN (occurrence: CN)
  Receive Date: 20240411
  Receipt Date: 20240411
  Transmission Date: 20240716
  Serious: Yes (Other)
  Sender: FDA-Public Use
  Company Number: CN-Merck Healthcare KGaA-2024017934

PATIENT
  Age: 51 Year
  Sex: Female

DRUGS (3)
  1. CETUXIMAB [Suspect]
     Active Substance: CETUXIMAB
     Indication: Colon cancer metastatic
     Dosage: UNK UNK, UNKNOWN
     Route: 065
     Dates: start: 20210623
  2. XELODA [Suspect]
     Active Substance: CAPECITABINE
     Indication: Colon cancer metastatic
     Dosage: UNK UNK, UNKNOWN
     Route: 065
     Dates: start: 20210623
  3. OXALIPLATIN [Suspect]
     Active Substance: OXALIPLATIN
     Indication: Colon cancer metastatic
     Dosage: UNK UNK, UNKNOWN
     Route: 065
     Dates: start: 20210623

REACTIONS (3)
  - Neurotoxicity [Unknown]
  - White blood cell count decreased [Unknown]
  - Off label use [Unknown]
